FAERS Safety Report 4659887-X (Version None)
Quarter: 2005Q2

REPORT INFORMATION
  Report Type: 
  Country: None (occurrence: None)
  Receive Date: 20050502
  Receipt Date: 20050201
  Transmission Date: 20051028
  Serious: Yes (Hospitalization)
  Sender: FDA-Public Use
  Company Number: KDL045938

PATIENT
  Age: 34 Year
  Sex: Male

DRUGS (3)
  1. PROCRIT [Suspect]
     Indication: HIV INFECTION
     Dosage: 60000 U, WEEKLY, SC
     Route: 058
     Dates: start: 20030606, end: 20030818
  2. ZIDOVUDINE [Concomitant]
  3. 3'THIACYTIDINE [Concomitant]

REACTIONS (3)
  - ANAEMIA [None]
  - PLATELET COUNT DECREASED [None]
  - WHITE BLOOD CELL COUNT DECREASED [None]
